FAERS Safety Report 24015885 (Version 2)
Quarter: 2024Q3

REPORT INFORMATION
  Report Type: Spontaneous
  Country: EG (occurrence: EG)
  Receive Date: 20240626
  Receipt Date: 20240711
  Transmission Date: 20241017
  Serious: Yes (Other)
  Sender: CIPLA
  Company Number: EG-CIPLA LTD.-2024EG06333

PATIENT

DRUGS (8)
  1. BLEOMYCIN SULFATE [Suspect]
     Active Substance: BLEOMYCIN SULFATE
     Indication: Hodgkin^s disease
     Dosage: 4 CYCLES
     Route: 065
     Dates: start: 20230915, end: 20231221
  2. BLEOMYCIN SULFATE [Suspect]
     Active Substance: BLEOMYCIN SULFATE
     Dosage: 15 UNIT DAY 1, 15 MG REPEATED EVERY 28 DAYS
     Route: 042
     Dates: start: 20240120, end: 20240217
  3. ADRIAMYCIN [Suspect]
     Active Substance: DOXORUBICIN HYDROCHLORIDE
     Indication: Hodgkin^s disease
     Dosage: 4 CYCLES
     Route: 065
     Dates: start: 20230915, end: 20231221
  4. ADRIAMYCIN [Suspect]
     Active Substance: DOXORUBICIN HYDROCHLORIDE
     Dosage: 42.5 MG DAY 1, 15 REPEATED EVERY 28 DAYS
     Route: 042
  5. DACARBAZINE [Suspect]
     Active Substance: DACARBAZINE
     Indication: Hodgkin^s disease
     Dosage: 4 CYCLES
     Route: 065
     Dates: start: 20230915, end: 20231221
  6. DACARBAZINE [Suspect]
     Active Substance: DACARBAZINE
     Dosage: 637.5 MG, DAY 1, 15 REPEATED EVERY 28 DAYS
     Route: 042
  7. VINCRISTINE SULFATE [Suspect]
     Active Substance: VINCRISTINE SULFATE
     Indication: Hodgkin^s disease
     Dosage: 4 CYCLES
     Route: 065
     Dates: start: 20230915, end: 20231221
  8. VINCRISTINE SULFATE [Suspect]
     Active Substance: VINCRISTINE SULFATE
     Dosage: 1 MG/1 ML VIAL DOSE OF 2 MG DAY 1, 15 REPEATED EVERY 28 DAYS
     Route: 042

REACTIONS (2)
  - Neutropenia [Recovered/Resolved]
  - Leukopenia [Recovered/Resolved]

NARRATIVE: CASE EVENT DATE: 20240120
